FAERS Safety Report 6734202-6 (Version None)
Quarter: 2010Q2

REPORT INFORMATION
  Report Type: 
  Country: None (occurrence: None)
  Receive Date: 20100520
  Receipt Date: 20100518
  Transmission Date: 20101027
  Serious: Yes (Other)
  Sender: FDA-Public Use
  Company Number: US-PFIZER INC-2010036766

PATIENT
  Sex: Female

DRUGS (6)
  1. CHANTIX [Suspect]
     Indication: SMOKING CESSATION THERAPY
     Dosage: 0.5 MG, 1X/DAY
     Route: 048
     Dates: start: 20100205, end: 20100213
  2. BUPROPION [Concomitant]
     Indication: ILL-DEFINED DISORDER
     Dosage: 150 MG, 1X/DAY
     Route: 048
     Dates: start: 20090101
  3. ZANAFLEX [Concomitant]
     Indication: MUSCULOSKELETAL PAIN
     Dosage: 12 MG, 2X/DAY
     Route: 048
  4. ZANAFLEX [Concomitant]
     Indication: ARTHRALGIA
  5. CYMBALTA [Concomitant]
     Indication: NEURALGIA
     Dosage: 60 MG, 1X/DAY
     Route: 048
  6. GABAPENTIN [Concomitant]
     Indication: NEURALGIA
     Dosage: 300 MG, 3X/DAY

REACTIONS (4)
  - AGGRESSION [None]
  - HALLUCINATION [None]
  - MEMORY IMPAIRMENT [None]
  - SUICIDAL IDEATION [None]
